FAERS Safety Report 7101509-2 (Version None)
Quarter: 2010Q4

REPORT INFORMATION
  Report Type: 
  Country: None (occurrence: None)
  Receive Date: 20101115
  Receipt Date: 20101109
  Transmission Date: 20110411
  Serious: Yes (Death, Other)
  Sender: FDA-Public Use
  Company Number: PHHY2010US75534

PATIENT
  Age: 29 Year
  Sex: Female

DRUGS (2)
  1. OXYTOCIN [Suspect]
  2. METHERGINE [Suspect]
     Dosage: MULTIPLE INJECTIONS

REACTIONS (17)
  - ANAPHYLACTOID SYNDROME OF PREGNANCY [None]
  - BLOOD FIBRINOGEN DECREASED [None]
  - CARDIAC ARREST [None]
  - CHORIOAMNIONITIS [None]
  - CIRCULATORY COLLAPSE [None]
  - COAGULOPATHY [None]
  - DISSEMINATED INTRAVASCULAR COAGULATION [None]
  - ENDOTRACHEAL INTUBATION [None]
  - HAEMORRHAGE [None]
  - HYPOTENSION [None]
  - PROTHROMBIN TIME PROLONGED [None]
  - PULMONARY OEDEMA [None]
  - PYREXIA [None]
  - RESPIRATORY FAILURE [None]
  - TACHYCARDIA [None]
  - TACHYPNOEA [None]
  - UTERINE HAEMORRHAGE [None]
